FAERS Safety Report 25651231 (Version 3)
Quarter: 2025Q3

REPORT INFORMATION
  Report Type: Spontaneous
  Country: US (occurrence: US)
  Receive Date: 20250806
  Receipt Date: 20250902
  Transmission Date: 20251020
  Serious: No
  Sender: PFIZER
  Company Number: US-PFIZER INC-202500155212

PATIENT
  Age: 26 Year
  Sex: Male
  Weight: 86.18 kg

DRUGS (2)
  1. BICILLIN L-A [Suspect]
     Active Substance: PENICILLIN G BENZATHINE
     Route: 030
     Dates: start: 20240830, end: 20240830
  2. BIKTARVY [Concomitant]
     Active Substance: BICTEGRAVIR SODIUM\EMTRICITABINE\TENOFOVIR ALAFENAMIDE FUMARATE
     Indication: HIV infection
     Dosage: REPORTED AS 50, 200, 25 1X/DAY

REACTIONS (1)
  - Recalled product administered [Unknown]

NARRATIVE: CASE EVENT DATE: 20240830
